FAERS Safety Report 21238278 (Version 2)
Quarter: 2022Q3

REPORT INFORMATION
  Report Type: Spontaneous
  Country: CA (occurrence: CA)
  Receive Date: 20220822
  Receipt Date: 20220825
  Transmission Date: 20221027
  Serious: Yes (Other)
  Sender: FDA-Public Use
  Company Number: CA-PFIZER INC-2021862109

PATIENT
  Age: 62 Year
  Sex: Female

DRUGS (14)
  1. XELJANZ [Suspect]
     Active Substance: TOFACITINIB CITRATE
     Indication: Rheumatoid arthritis
     Dosage: 5 MG, 2X/DAY
     Route: 048
     Dates: start: 20150806, end: 2017
  2. XELJANZ [Suspect]
     Active Substance: TOFACITINIB CITRATE
     Dosage: 5 MG, 1X/DAY
     Route: 048
     Dates: start: 2017
  3. ACETAMINOPHEN [Concomitant]
     Active Substance: ACETAMINOPHEN
     Dosage: UNK
     Route: 065
  4. CELEBREX [Concomitant]
     Active Substance: CELECOXIB
     Dosage: 200 MG, 2X/DAY
     Route: 048
     Dates: start: 20150422, end: 201607
  5. CELEBREX [Concomitant]
     Active Substance: CELECOXIB
     Dosage: 200 MG, DAILY
     Route: 048
     Dates: start: 201607
  6. CELEBREX [Concomitant]
     Active Substance: CELECOXIB
     Dosage: 200 MG, 1X/DAY
     Route: 048
     Dates: start: 201607
  7. CELEBREX [Concomitant]
     Active Substance: CELECOXIB
     Dosage: 100 MG, DIE INSTEAD OF BID.
  8. LYRICA [Concomitant]
     Active Substance: PREGABALIN
     Indication: Fibromyalgia
     Dosage: 1 DF DOSAGE INFO: UNKNOWN
     Route: 048
     Dates: start: 2014, end: 201504
  9. LYRICA [Concomitant]
     Active Substance: PREGABALIN
     Dosage: 100 MG, DAILY DOSAGE FREQUENCY: HSSTOP DATE: JUN/JUL2017
     Route: 048
     Dates: start: 2017, end: 2017
  10. LYRICA [Concomitant]
     Active Substance: PREGABALIN
     Dosage: 100 MG, 1X/DAY DOSAGE FREQUENCY: HSSTOP DATE: JUN/JUL2017
     Route: 048
     Dates: start: 2017, end: 2017
  11. LYRICA [Concomitant]
     Active Substance: PREGABALIN
     Dosage: 50 MG, DAILY DOSAGE FREQUENCY: HS START DATE: JUN/JUL2017
     Route: 048
     Dates: start: 2017
  12. LYRICA [Concomitant]
     Active Substance: PREGABALIN
     Dosage: 50 MG, 1X/DAY DOSAGE FREQUENCY: HSSTART DATE: JUN/JUL2017
     Route: 048
     Dates: start: 2017
  13. LYRICA [Concomitant]
     Active Substance: PREGABALIN
     Dosage: 50 MG, DAILY
     Route: 048
     Dates: start: 201706
  14. LYRICA [Concomitant]
     Active Substance: PREGABALIN
     Dosage: 50 MG, 2X/DAY, AT BEDTIME
     Route: 048

REACTIONS (10)
  - Urethral obstruction [Unknown]
  - Ureteric obstruction [Unknown]
  - Bladder operation [Unknown]
  - Uterine dilation and curettage [Unknown]
  - Off label use [Unknown]
  - Urinary tract infection [Unknown]
  - C-reactive protein increased [Not Recovered/Not Resolved]
  - Condition aggravated [Recovering/Resolving]
  - Dehydration [Unknown]
  - Renal function test abnormal [Unknown]

NARRATIVE: CASE EVENT DATE: 20151019
